FAERS Safety Report 13567434 (Version 1)
Quarter: 2017Q2

REPORT INFORMATION
  Report Type: Spontaneous
  Country: US (occurrence: US)
  Receive Date: 20170522
  Receipt Date: 20170522
  Transmission Date: 20170830
  Serious: No
  Sender: FDA-Public Use
  Company Number: US-PFIZER INC-2017217501

PATIENT
  Age: 47 Year
  Sex: Female

DRUGS (2)
  1. XELJANZ XR [Suspect]
     Active Substance: TOFACITINIB CITRATE
     Dosage: UNK
  2. METHOTREXATE SODIUM. [Suspect]
     Active Substance: METHOTREXATE SODIUM
     Dosage: 15 MG, WEEKLY

REACTIONS (13)
  - Joint crepitation [Unknown]
  - Joint swelling [Unknown]
  - Musculoskeletal stiffness [Unknown]
  - Fatigue [Unknown]
  - Peripheral swelling [Unknown]
  - Dry mouth [Unknown]
  - Headache [Unknown]
  - Increased tendency to bruise [Unknown]
  - Pain in extremity [Unknown]
  - Middle insomnia [Unknown]
  - Arthralgia [Unknown]
  - Dry eye [Unknown]
  - Dizziness [Unknown]
